FAERS Safety Report 19412435 (Version 1)
Quarter: 2021Q2

REPORT INFORMATION
  Report Type: Spontaneous
  Country: AU (occurrence: AU)
  Receive Date: 20210614
  Receipt Date: 20210614
  Transmission Date: 20210717
  Serious: Yes (Hospitalization, Other)
  Sender: FDA-Public Use
  Company Number: AU-009507513-2106AUS003411

PATIENT
  Age: 63 Year
  Sex: Male

DRUGS (1)
  1. PEMBROLIZUMAB. [Suspect]
     Active Substance: PEMBROLIZUMAB
     Indication: RENAL CANCER
     Dosage: UNK

REACTIONS (4)
  - Myasthenia gravis [Recovered/Resolved]
  - Immune-mediated myocarditis [Recovered/Resolved]
  - Transaminases increased [Recovered/Resolved]
  - Immune-mediated myositis [Recovered/Resolved]
